FAERS Safety Report 4700889-2 (Version None)
Quarter: 2005Q2

REPORT INFORMATION
  Report Type: 
  Country: None (occurrence: None)
  Receive Date: 20050113
  Receipt Date: 20050113
  Transmission Date: 20051028
  Serious: No
  Sender: FDA-Public Use
  Company Number: None

PATIENT
  Sex: Female

DRUGS (2)
  1. DILANTIN [Suspect]
     Indication: COMPLEX PARTIAL SEIZURES
     Dosage: 100MG ; TWO @ HS ; ORAL
     Route: 048
  2. DILANTIN [Suspect]
     Indication: EPILEPSY
     Dosage: 100MG ; TWO @ HS ; ORAL
     Route: 048

REACTIONS (2)
  - CONVULSION [None]
  - LABORATORY TEST ABNORMAL [None]
